FAERS Safety Report 5245039-1 (Version None)
Quarter: 2007Q1

REPORT INFORMATION
  Report Type: 
  Country: None (occurrence: None)
  Receive Date: 20070223
  Receipt Date: 20070220
  Transmission Date: 20070707
  Serious: No
  Sender: FDA-Public Use
  Company Number: CH-BAXTER-2007BH002056

PATIENT
  Age: 43 Year
  Sex: Male

DRUGS (8)
  1. ADVATE [Suspect]
     Indication: HAEMOPHILIA
     Route: 065
     Dates: start: 20060811, end: 20061215
  2. ADVATE [Suspect]
     Indication: HAEMARTHROSIS
     Route: 065
     Dates: start: 20060811, end: 20061215
  3. ADVATE [Suspect]
     Route: 065
     Dates: start: 20060811, end: 20061215
  4. ADVATE [Suspect]
     Route: 065
     Dates: start: 20060811, end: 20061215
  5. ADVATE [Suspect]
     Route: 065
     Dates: start: 20061215, end: 20070205
  6. ADVATE [Suspect]
     Route: 065
     Dates: start: 20061215, end: 20070205
  7. ADVATE [Suspect]
     Route: 065
     Dates: start: 20061215, end: 20070205
  8. ADVATE [Suspect]
     Route: 065
     Dates: start: 20061215, end: 20070205

REACTIONS (2)
  - DRUG EFFECT DECREASED [None]
  - HAEMARTHROSIS [None]
